FAERS Safety Report 6756167-3 (Version None)
Quarter: 2010Q2

REPORT INFORMATION
  Report Type: 
  Country: None (occurrence: None)
  Receive Date: 20100604
  Receipt Date: 20100525
  Transmission Date: 20101027
  Serious: Yes (Death)
  Sender: FDA-Public Use
  Company Number: JP-PFIZER INC-2010024590

PATIENT
  Age: 65 Year
  Sex: Male
  Weight: 58 kg

DRUGS (1)
  1. CELECOX [Suspect]
     Indication: OSTEOARTHRITIS
     Dosage: 200 MG, UNKNOWN/D
     Route: 048
     Dates: start: 20080710

REACTIONS (1)
  - DEATH [None]
